FAERS Safety Report 5969324-0 (Version None)
Quarter: 2008Q4

REPORT INFORMATION
  Report Type: 
  Country: None (occurrence: None)
  Receive Date: 20081126
  Receipt Date: 20081119
  Transmission Date: 20090506
  Serious: Yes (Other)
  Sender: FDA-Public Use
  Company Number: ES-GENENTECH-272148

PATIENT

DRUGS (3)
  1. AVASTIN [Suspect]
     Indication: MACULAR DEGENERATION
     Dosage: 1.25 MG, UNK
     Route: 031
  2. PHOTODYNAMIC THERAPY [Concomitant]
     Indication: MACULAR DEGENERATION
     Dosage: UNK
  3. VISUDYNE [Concomitant]
     Indication: MACULAR DEGENERATION

REACTIONS (1)
  - UVEITIS [None]
